FAERS Safety Report 5036630-6 (Version None)
Quarter: 2006Q2

REPORT INFORMATION
  Report Type: 
  Country: None (occurrence: None)
  Receive Date: 20060628
  Receipt Date: 20060327
  Transmission Date: 20061013
  Serious: Yes (Death, Hospitalization)
  Sender: FDA-Public Use
  Company Number: PHEH2006US03991

PATIENT
  Age: 71 Year
  Sex: Male
  Weight: 76.19 kg

DRUGS (1)
  1. EXJADE [Suspect]
     Indication: HAEMOSIDEROSIS
     Dosage: 1500 MG, QD
     Dates: start: 20060303, end: 20060322

REACTIONS (14)
  - BLOOD ALBUMIN DECREASED [None]
  - BLOOD CALCIUM DECREASED [None]
  - BLOOD CREATININE INCREASED [None]
  - BLOOD POTASSIUM DECREASED [None]
  - BLOOD UREA INCREASED [None]
  - BLOOD URINE PRESENT [None]
  - HAEMODIALYSIS [None]
  - LEUKAEMIA RECURRENT [None]
  - MALAISE [None]
  - PROTEIN TOTAL DECREASED [None]
  - PROTEINURIA [None]
  - PYREXIA [None]
  - RENAL FAILURE ACUTE [None]
  - THROMBOCYTOPENIA [None]
